FAERS Safety Report 4298420-1 (Version None)
Quarter: 2004Q1

REPORT INFORMATION
  Report Type: 
  Country: None (occurrence: None)
  Receive Date: 20040218
  Receipt Date: 20030715
  Transmission Date: 20041129
  Serious: Yes (Other)
  Sender: FDA-Public Use
  Company Number: US-BRISTOL-MYERS SQUIBB COMPANY-12325379

PATIENT
  Age: 55 Year
  Sex: Male

DRUGS (12)
  1. STADOL [Suspect]
     Indication: MIGRAINE
     Dosage: DOSE VALUE:  4-6 SPRAYS
     Route: 045
  2. STADOL [Suspect]
     Indication: ANXIETY
     Dosage: DOSE VALUE:  4-6 SPRAYS
     Route: 045
  3. STADOL [Suspect]
     Indication: STRESS SYMPTOMS
     Dosage: DOSE VALUE:  4-6 SPRAYS
     Route: 045
  4. HYDROCODONE + ACETAMINOPHEN [Concomitant]
  5. PROPOXYPHENE NAPSYLATE [Concomitant]
  6. BUSPIRONE HCL [Concomitant]
  7. AMITRIPTYLINE [Concomitant]
  8. PROPACET 100 [Concomitant]
  9. IMITREX [Concomitant]
     Indication: HEADACHE
  10. CHLORDIAZEPOXIDE [Concomitant]
  11. CARISOPRODOL [Concomitant]
  12. VICODIN [Concomitant]

REACTIONS (2)
  - DEPENDENCE [None]
  - DRUG WITHDRAWAL SYNDROME [None]
